FAERS Safety Report 9698197 (Version 1)
Quarter: 2013Q4

REPORT INFORMATION
  Report Type: Spontaneous
  Country: DE (occurrence: DE)
  Receive Date: 20131120
  Receipt Date: 20131120
  Transmission Date: 20140711
  Serious: Yes (Life-Threatening, Hospitalization)
  Sender: FDA-Public Use
  Company Number: DE-BRISTOL-MYERS SQUIBB COMPANY-19835065

PATIENT
  Age: 59 Year
  Sex: Female
  Weight: 75 kg

DRUGS (3)
  1. METFORMIN HCL [Suspect]
     Route: 048
     Dates: start: 20130226
  2. ATENOLOL [Concomitant]
     Route: 048
  3. EUTHYROX [Concomitant]
     Route: 048

REACTIONS (5)
  - Dehydration [Unknown]
  - Renal failure [Unknown]
  - Shock [Unknown]
  - Lactic acidosis [Unknown]
  - Diarrhoea [Unknown]
